FAERS Safety Report 9766678 (Version 1)
Quarter: 2013Q4

REPORT INFORMATION
  Report Type: Spontaneous
  Country: US (occurrence: US)
  Receive Date: 20131217
  Receipt Date: 20131217
  Transmission Date: 20140711
  Serious: Yes (Other)
  Sender: FDA-Public Use
  Company Number: US-GLAXOSMITHKLINE-A1030350A

PATIENT
  Age: 64 Year
  Sex: Female
  Weight: 71 kg

DRUGS (1)
  1. VOTRIENT [Suspect]
     Indication: RENAL CELL CARCINOMA
     Dosage: 800MG PER DAY
     Dates: start: 20130617

REACTIONS (2)
  - Hypertension [Recovering/Resolving]
  - Fatigue [Recovering/Resolving]
